FAERS Safety Report 13795017 (Version 1)
Quarter: 2017Q3

REPORT INFORMATION
  Report Type: Report from Study
  Country: None (occurrence: DE)
  Receive Date: 20170726
  Receipt Date: 20170726
  Transmission Date: 20171127
  Serious: Yes (Other)
  Sender: FDA-Public Use
  Company Number: DE-ABBVIE-17K-062-2051495-00

PATIENT
  Sex: Male

DRUGS (1)
  1. DUODOPA [Suspect]
     Active Substance: CARBIDOPA\LEVODOPA
     Indication: PARKINSON^S DISEASE
     Dosage: MD 5.5 ML; CRD 3.3 ML/H; ED 1.5 ML
     Route: 050
     Dates: start: 20170724, end: 20170724

REACTIONS (1)
  - Pneumonia [Not Recovered/Not Resolved]

NARRATIVE: CASE EVENT DATE: 20170726
